FAERS Safety Report 8079280-X (Version None)
Quarter: 2012Q1

REPORT INFORMATION
  Report Type: 
  Country: None (occurrence: None)
  Receive Date: 20120128
  Receipt Date: 20110819
  Transmission Date: 20120608
  Serious: No
  Sender: FDA-Public Use
  Company Number: US-ABBOTT-11P-163-0848159-00

PATIENT
  Age: 41 Year
  Sex: Male

DRUGS (3)
  1. IBUPROFEN [Concomitant]
     Indication: PRODUCT USED FOR UNKNOWN INDICATION
  2. HUMIRA [Suspect]
     Indication: RHEUMATOID ARTHRITIS
     Dates: start: 20020101
  3. HUMIRA [Suspect]

REACTIONS (4)
  - ARTHRALGIA [None]
  - OEDEMA PERIPHERAL [None]
  - CROHN'S DISEASE [None]
  - DRUG EFFECT DECREASED [None]
